FAERS Safety Report 21506450 (Version 2)
Quarter: 2022Q4

REPORT INFORMATION
  Report Type: Report from Study
  Country: CA (occurrence: CA)
  Receive Date: 20221026
  Receipt Date: 20221115
  Transmission Date: 20230112
  Serious: Yes (Death, Hospitalization, Other)
  Sender: FDA-Public Use
  Company Number: CA-NOVARTISPH-NVSC2022CA239067

PATIENT
  Sex: Female
  Weight: 88 kg

DRUGS (1)
  1. VOTRIENT [Suspect]
     Active Substance: PAZOPANIB HYDROCHLORIDE
     Indication: Telangiectasia
     Dosage: 200 MG
     Route: 048
     Dates: start: 20200515, end: 20210814

REACTIONS (3)
  - End stage renal disease [Fatal]
  - Respiratory arrest [Fatal]
  - Aspiration [Fatal]
